FAERS Safety Report 7325447-5 (Version None)
Quarter: 2011Q1

REPORT INFORMATION
  Report Type: 
  Country: None (occurrence: None)
  Receive Date: 20110218
  Receipt Date: 20110202
  Transmission Date: 20110831
  Serious: Yes (Hospitalization)
  Sender: FDA-Public Use
  Company Number: 2011MA000978

PATIENT
  Age: 76 Year
  Sex: Female

DRUGS (1)
  1. SERTRALINE HYDROCHLORIDE TABLETS, 100MG (ATLLC) (SERTRALINE) [Suspect]
     Indication: DEPRESSION
     Dosage: 25 MG; QD; PO
     Route: 048

REACTIONS (13)
  - AGITATION [None]
  - CONFUSIONAL STATE [None]
  - DIZZINESS [None]
  - MOTOR DYSFUNCTION [None]
  - BLOOD LACTATE DEHYDROGENASE INCREASED [None]
  - BLOOD CREATINE PHOSPHOKINASE INCREASED [None]
  - DELIRIUM [None]
  - HYPERHIDROSIS [None]
  - BLOOD PRESSURE INCREASED [None]
  - MENTAL DISORDER [None]
  - ASPARTATE AMINOTRANSFERASE INCREASED [None]
  - AUTONOMIC NERVOUS SYSTEM IMBALANCE [None]
  - ALANINE AMINOTRANSFERASE INCREASED [None]
